FAERS Safety Report 8606564-6 (Version None)
Quarter: 2012Q3

REPORT INFORMATION
  Report Type: 
  Country: None (occurrence: None)
  Receive Date: 20120820
  Receipt Date: 20120813
  Transmission Date: 20120928
  Serious: Yes (Hospitalization, Other)
  Sender: FDA-Public Use
  Company Number: DE-PFIZER INC-2012199704

PATIENT
  Age: 59 Year
  Sex: Female

DRUGS (15)
  1. RAMIPRIL [Suspect]
     Dosage: UNK
     Route: 048
     Dates: start: 20060101, end: 20100610
  2. HUMALOG [Concomitant]
     Dosage: UNK
     Dates: start: 19950101
  3. EZETIMIBE [Concomitant]
     Dosage: UNK
  4. PREDNISONE TAB [Concomitant]
     Dosage: UNK
  5. ALISKIREN [Suspect]
     Dosage: 150 MG, DAILY
  6. HYDROCHLOROTHIAZIDE [Suspect]
     Dosage: UNK
     Route: 065
  7. ATACAND [Suspect]
     Dosage: 4 MG, DAILY
     Dates: start: 20060101
  8. AMLODIPINE [Concomitant]
     Dosage: UNK
     Dates: start: 20060101, end: 20100710
  9. MOXONIDINE [Concomitant]
     Dosage: UNK
  10. NORVASC [Concomitant]
     Dosage: UNK
  11. PLAVIX [Concomitant]
     Dosage: UNK
  12. ALISKIREN [Suspect]
     Dosage: 300 MG, DAILY
     Route: 048
     Dates: start: 20090101
  13. TORSEMIDE [Concomitant]
     Dosage: UNK
  14. LANTUS [Concomitant]
     Dosage: UNK
     Dates: start: 19950101
  15. THYREOIDIN [Concomitant]
     Dosage: UNK

REACTIONS (2)
  - UROSEPSIS [None]
  - RHEUMATOID ARTHRITIS [None]
